FAERS Safety Report 17765800 (Version 1)
Quarter: 2020Q2

REPORT INFORMATION
  Report Type: Other
  Country: GB (occurrence: GB)
  Receive Date: 20200511
  Receipt Date: 20200511
  Transmission Date: 20200714
  Serious: Yes (Hospitalization)
  Sender: FDA-Public Use
  Company Number: GB-STRIDES ARCOLAB LIMITED-2020SP005692

PATIENT
  Age: 3 Year
  Sex: Female
  Weight: 18 kg

DRUGS (1)
  1. IBUPROFEN. [Suspect]
     Active Substance: IBUPROFEN
     Indication: PAIN
     Dosage: UNK (INGESTION OF FULL BOTTLE = 2G OF IBUPROFEN (111MG/KG) BASED ON 18KG WEIGHT, ORAL SUSPENSION
     Route: 048
     Dates: start: 20200428, end: 20200428

REACTIONS (4)
  - Metabolic acidosis [Recovered/Resolved]
  - Accidental overdose [Recovered/Resolved]
  - Diarrhoea [Recovered/Resolved]
  - Abdominal pain [Recovered/Resolved]

NARRATIVE: CASE EVENT DATE: 20200428
